FAERS Safety Report 7974145-3 (Version None)
Quarter: 2011Q4

REPORT INFORMATION
  Report Type: 
  Country: None (occurrence: None)
  Receive Date: 20111213
  Receipt Date: 20111208
  Transmission Date: 20120403
  Serious: No
  Sender: FDA-Public Use
  Company Number: US-PFIZER INC-2011300549

PATIENT
  Sex: Female
  Weight: 78.005 kg

DRUGS (3)
  1. ADVIL CONGESTION RELIEF [Suspect]
     Indication: NASAL CONGESTION
     Dosage: UNK
     Route: 048
     Dates: start: 20111201, end: 20111207
  2. TUSSIN DM [Concomitant]
     Indication: COUGH
     Dosage: UNK
  3. ADVIL CONGESTION RELIEF [Suspect]
     Indication: SWELLING

REACTIONS (1)
  - DRUG INEFFECTIVE [None]
